FAERS Safety Report 12915483 (Version 1)
Quarter: 2016Q4

REPORT INFORMATION
  Report Type: Spontaneous
  Country: US (occurrence: US)
  Receive Date: 20161106
  Receipt Date: 20161106
  Transmission Date: 20170207
  Serious: No
  Sender: FDA-Public Use
  Company Number: US-RELYPSA-RLY2016003017

PATIENT
  Age: 52 Year
  Sex: Male

DRUGS (9)
  1. ASPIRIN 81 [Concomitant]
     Active Substance: ASPIRIN
     Dosage: 81 MG, QD
  2. AMBIEN [Concomitant]
     Active Substance: ZOLPIDEM TARTRATE
     Dosage: 5 MG, QD (NIGHTLY)
  3. VELTASSA [Suspect]
     Active Substance: PATIROMER
     Indication: HYPERKALAEMIA
     Dosage: 8.4 G, QD
     Route: 048
     Dates: start: 20160907
  4. COREG [Concomitant]
     Active Substance: CARVEDILOL
     Dosage: 12.5 MG, BID
  5. LIPITOR [Concomitant]
     Active Substance: ATORVASTATIN CALCIUM
     Dosage: 80 MG, QD
  6. LANTUS [Concomitant]
     Active Substance: INSULIN GLARGINE
     Dosage: 25 U, QD (MORNING)
  7. LISINOPRIL. [Concomitant]
     Active Substance: LISINOPRIL
     Dosage: 20 MG, QD
  8. LANTUS [Concomitant]
     Active Substance: INSULIN GLARGINE
     Dosage: 10 U, QD (EVENING).
  9. SPIRONOLACTONE. [Concomitant]
     Active Substance: SPIRONOLACTONE
     Dosage: 25 MG, BID

REACTIONS (1)
  - Diarrhoea [Recovered/Resolved]

NARRATIVE: CASE EVENT DATE: 201609
